FAERS Safety Report 10351735 (Version 1)
Quarter: 2014Q3

REPORT INFORMATION
  Report Type: Spontaneous
  Country: US (occurrence: US)
  Receive Date: 20140730
  Receipt Date: 20140730
  Transmission Date: 20150326
  Serious: Yes (Hospitalization)
  Sender: FDA-Public Use
  Company Number: US-CUBIST PHARMACEUTICAL, INC.-2014CBST001101

PATIENT

DRUGS (7)
  1. CUBICIN [Suspect]
     Active Substance: DAPTOMYCIN
     Indication: ENTEROCOCCAL INFECTION
  2. CUBICIN [Suspect]
     Active Substance: DAPTOMYCIN
     Indication: BACTERAEMIA
  3. MICAFUNGIN [Concomitant]
     Active Substance: MICAFUNGIN
     Indication: ENTEROCOCCAL INFECTION
     Dosage: 100 MG, / DAY
     Route: 042
  4. MICAFUNGIN [Concomitant]
     Active Substance: MICAFUNGIN
     Indication: BACTERAEMIA
  5. CUBICIN [Suspect]
     Active Substance: DAPTOMYCIN
     Indication: CANDIDA INFECTION
     Dosage: UNK UNK, UNK
     Route: 065
  6. MICAFUNGIN [Concomitant]
     Active Substance: MICAFUNGIN
     Indication: CANDIDA INFECTION
     Dosage: UNK UNK, UNK
     Route: 065
  7. CUBICIN [Suspect]
     Active Substance: DAPTOMYCIN
     Indication: OFF LABEL USE

REACTIONS (5)
  - Traumatic ulcer [Unknown]
  - Electrocardiogram QT prolonged [Not Recovered/Not Resolved]
  - Hypotension [Unknown]
  - Fungaemia [Recovered/Resolved]
  - Candida infection [Recovered/Resolved]
